FAERS Safety Report 25062867 (Version 1)
Quarter: 2025Q1

REPORT INFORMATION
  Report Type: Spontaneous
  Country: US (occurrence: US)
  Receive Date: 20250311
  Receipt Date: 20250311
  Transmission Date: 20250409
  Serious: Yes (Other)
  Sender: BRISTOL-MYERS SQUIBB COMPANY
  Company Number: US-BRISTOL-MYERS SQUIBB COMPANY-2025-034522

PATIENT
  Age: 30 Year
  Sex: Female

DRUGS (2)
  1. REVLIMID [Suspect]
     Active Substance: LENALIDOMIDE
     Indication: Plasmablastic lymphoma
     Dosage: FREQ : 21 OUT OF 28 DAY CYCLE
     Route: 048
     Dates: start: 202402, end: 202408
  2. TOCILIZUMAB [Suspect]
     Active Substance: TOCILIZUMAB
     Indication: Product used for unknown indication

REACTIONS (3)
  - Plasmablastic lymphoma [Unknown]
  - Exposure to allergen [Unknown]
  - Off label use [Unknown]
